FAERS Safety Report 4990860-8 (Version None)
Quarter: 2006Q2

REPORT INFORMATION
  Report Type: 
  Country: None (occurrence: None)
  Receive Date: 20060428
  Receipt Date: 20060411
  Transmission Date: 20061013
  Serious: Yes (Hospitalization)
  Sender: FDA-Public Use
  Company Number: USA020413485

PATIENT
  Age: 57 Year
  Sex: Female

DRUGS (5)
  1. HUMALOG MIX 75/25 [Suspect]
     Indication: DIABETES MELLITUS
     Dates: start: 20030101, end: 20060117
  2. HUMALOG [Suspect]
     Indication: DIABETES MELLITUS
     Dosage: 22 U OTHER
     Dates: start: 20060207
  3. HUMULIN N [Suspect]
     Indication: DIABETES MELLITUS
     Dates: start: 20011101, end: 20030101
  4. HUMULIN 70/30 [Suspect]
     Indication: DIABETES MELLITUS
  5. LANTUS [Concomitant]

REACTIONS (19)
  - BLOOD GLUCOSE DECREASED [None]
  - BLOOD GLUCOSE INCREASED [None]
  - BLOODY DISCHARGE [None]
  - BREAST INFECTION [None]
  - BREAST INJURY [None]
  - CARDIAC FAILURE CONGESTIVE [None]
  - CORONARY ARTERY OCCLUSION [None]
  - GLYCOSYLATED HAEMOGLOBIN DECREASED [None]
  - HAEMATOMA [None]
  - HAEMORRHAGE [None]
  - HYPOAESTHESIA [None]
  - LIMB INJURY [None]
  - LOCALISED INFECTION [None]
  - MALAISE [None]
  - OVERDOSE [None]
  - RETINOPATHY [None]
  - SOMNOLENCE [None]
  - THYROID DISORDER [None]
  - WEIGHT INCREASED [None]
